FAERS Safety Report 8442880-9 (Version None)
Quarter: 2012Q2

REPORT INFORMATION
  Report Type: 
  Country: None (occurrence: None)
  Receive Date: 20120615
  Receipt Date: 20120305
  Transmission Date: 20120825
  Serious: Yes (Other)
  Sender: FDA-Public Use
  Company Number: FR-ELI_LILLY_AND_COMPANY-FR201203002628

PATIENT
  Age: 89 Year
  Sex: Female

DRUGS (8)
  1. PROPRANOLOL [Concomitant]
     Indication: HYPERTENSION
     Dosage: 40 MG, BID
     Dates: start: 19980101
  2. TRAMADOL HYDROCHLORIDE [Concomitant]
     Indication: OSTEOARTHRITIS
     Dosage: 100 MG, QD
     Dates: start: 20100101
  3. FORTEO [Suspect]
     Indication: OSTEOPOROSIS
     Dosage: 20 UG, QD
     Route: 058
     Dates: start: 20120208
  4. LEVOTHYROXINE SODIUM [Concomitant]
     Indication: HYPOTHYROIDISM
     Dosage: 75 UG, QD
     Dates: start: 20010101
  5. CORDARONE [Concomitant]
     Indication: ARRHYTHMIA
     Dosage: UNK, WEEKLY (1/W)
  6. ASPIRIN [Concomitant]
     Indication: ARRHYTHMIA
     Dosage: 75 MG, QD
     Dates: end: 20000101
  7. NICARDIPINE HYDROCHLORIDE [Concomitant]
     Indication: HYPERTENSION
     Dosage: 20 MG, TID
     Dates: start: 20050101
  8. VASTAREL [Concomitant]
     Indication: VERTIGO
     Dosage: 35 MG, BID
     Dates: start: 20030101

REACTIONS (1)
  - AGE-RELATED MACULAR DEGENERATION [None]
